FAERS Safety Report 7979615-X (Version None)
Quarter: 2011Q4

REPORT INFORMATION
  Report Type: 
  Country: None (occurrence: None)
  Receive Date: 20111201
  Receipt Date: 20111123
  Transmission Date: 20120403
  Serious: Yes (Hospitalization, Other)
  Sender: FDA-Public Use
  Company Number: 2010SP010746

PATIENT
  Age: 25 Year
  Sex: Female
  Weight: 81.6475 kg

DRUGS (2)
  1. NUVARING [Suspect]
     Indication: CONTRACEPTION
     Dates: start: 20070101, end: 20080501
  2. NUVARING [Suspect]
     Indication: CONTRACEPTION
     Dates: start: 20081001

REACTIONS (20)
  - BONE PAIN [None]
  - LOBAR PNEUMONIA [None]
  - ERUCTATION [None]
  - HAEMORRHAGE [None]
  - TACHYCARDIA [None]
  - MUSCLE STRAIN [None]
  - RESPIRATORY FAILURE [None]
  - OVARIAN CYST [None]
  - PELVIC PAIN [None]
  - PULMONARY EMBOLISM [None]
  - ASTHMA [None]
  - CONTUSION [None]
  - CELLULITIS [None]
  - UPPER RESPIRATORY TRACT INFECTION [None]
  - SWELLING [None]
  - FALL [None]
  - GASTROENTERITIS [None]
  - ATELECTASIS [None]
  - THROMBOPHLEBITIS [None]
  - DEEP VEIN THROMBOSIS [None]
